FAERS Safety Report 5325077-0 (Version None)
Quarter: 2007Q2

REPORT INFORMATION
  Report Type: 
  Country: None (occurrence: None)
  Receive Date: 20070511
  Receipt Date: 20070511
  Transmission Date: 20071010
  Serious: Yes (Hospitalization)
  Sender: FDA-Public Use
  Company Number: None

PATIENT
  Age: 59 Year
  Sex: Male

DRUGS (13)
  1. NITROGLYCERIN [Suspect]
     Indication: CHEST PAIN
     Dosage: 400MCG SL TAB X 3 TABS
     Route: 060
     Dates: start: 20070126, end: 20070126
  2. ACCU-CHEK COMFORT CV-GLUCOSE TEST STRIP [Concomitant]
  3. ACETAMINOPHEN [Concomitant]
  4. ALBUTEROL [Concomitant]
  5. BUPROPION HCL [Concomitant]
  6. DOCUSATE NA [Concomitant]
  7. ETODOLAC [Concomitant]
  8. FUROSEMIDE [Concomitant]
  9. GLYBURIDE [Concomitant]
  10. LISINOPRIL [Concomitant]
  11. METFORMIN HCL [Concomitant]
  12. METHADONE HCL [Concomitant]
  13. METOPROLOL TARTRATE [Concomitant]

REACTIONS (1)
  - HYPOTENSION [None]
